FAERS Safety Report 17351938 (Version 2)
Quarter: 2020Q2

REPORT INFORMATION
  Report Type: Spontaneous
  Country: US (occurrence: US)
  Receive Date: 20200130
  Receipt Date: 20200504
  Transmission Date: 20200713
  Serious: Yes (Other)
  Sender: FDA-Public Use
  Company Number: US-BAYER-2020-016766

PATIENT
  Age: 33 Year
  Sex: Female
  Weight: 75 kg

DRUGS (1)
  1. MIRENA [Suspect]
     Active Substance: LEVONORGESTREL
     Indication: CONTRACEPTION
     Dosage: 20 MCG/24HR, CONT
     Route: 015
     Dates: start: 20191107

REACTIONS (5)
  - Multiple use of single-use product [None]
  - Coital bleeding [None]
  - Device dislocation [Not Recovered/Not Resolved]
  - Dysmenorrhoea [None]
  - Metrorrhagia [None]

NARRATIVE: CASE EVENT DATE: 20191107
